FAERS Safety Report 15852846 (Version 1)
Quarter: 2019Q1

REPORT INFORMATION
  Report Type: Spontaneous
  Country: PL (occurrence: PL)
  Receive Date: 20190122
  Receipt Date: 20190122
  Transmission Date: 20190417
  Serious: Yes (Other)
  Sender: FDA-Public Use
  Company Number: PL-BAUSCH-BL-2019-001482

PATIENT
  Age: 39 Year
  Sex: Male

DRUGS (5)
  1. INSULATARD HM [Suspect]
     Active Substance: INSULIN HUMAN
     Dosage: 12 U, QD(AT BEDTIME)
     Route: 058
  2. INSULATARD HM [Suspect]
     Active Substance: INSULIN HUMAN
     Indication: DIABETES MELLITUS
     Dosage: 6 UNITS (IN THE EVENING)
     Route: 058
     Dates: end: 201805
  3. INSULATARD HM [Suspect]
     Active Substance: INSULIN HUMAN
     Dosage: 22 U, QD (AT BEDTIME)
     Route: 058
     Dates: start: 201803
  4. METFORMIN [Suspect]
     Active Substance: METFORMIN HYDROCHLORIDE
     Dosage: 1000 MG, QD (AT BEDTIME)
     Route: 048
     Dates: start: 201803
  5. METFORMIN [Suspect]
     Active Substance: METFORMIN HYDROCHLORIDE
     Indication: DIABETES MELLITUS
     Dosage: 2000 MG, QD (AT BEDTIME)
     Route: 048

REACTIONS (4)
  - Visual impairment [Recovered/Resolved]
  - Inappropriate schedule of product administration [Unknown]
  - Weight increased [Unknown]
  - Blood glucose increased [Unknown]

NARRATIVE: CASE EVENT DATE: 201803
